FAERS Safety Report 26064714 (Version 1)
Quarter: 2025Q4

REPORT INFORMATION
  Report Type: Spontaneous
  Country: EU (occurrence: EU)
  Receive Date: 20251119
  Receipt Date: 20251119
  Transmission Date: 20260119
  Serious: Yes (Other)
  Sender: SANOFI AVENTIS
  Company Number: None

PATIENT
  Age: 65 Year
  Sex: Male

DRUGS (11)
  1. OXALIPLATIN [Suspect]
     Active Substance: OXALIPLATIN
     Indication: Oesophageal squamous cell carcinoma
     Dosage: 166.6 MG, QOW
     Route: 042
     Dates: start: 20250430, end: 20250930
  2. OXALIPLATIN [Suspect]
     Active Substance: OXALIPLATIN
     Dosage: 119 MG, QOW (OXALIPLATIN 119 MG (59.5 MG/M2) + GLUCOSE 5% 250 ML EVERY TWO WEEKS (12TH CYCLE)
     Route: 042
     Dates: start: 20251014, end: 20251014
  3. MAGNESIUM SULFATE [Concomitant]
     Active Substance: MAGNESIUM SULFATE
     Dosage: UNK
  4. ONDANSETRON [Concomitant]
     Active Substance: ONDANSETRON
     Dosage: UNK
  5. DEXAMETHASONE [Concomitant]
     Active Substance: DEXAMETHASONE
     Dosage: UNK
  6. LEVOLEUCOVORIN CALCIUM [Concomitant]
     Active Substance: LEVOLEUCOVORIN CALCIUM
     Dosage: UNK
  7. FLUOROURACIL [Concomitant]
     Active Substance: FLUOROURACIL
     Dosage: UNK
  8. PEMBROLIZUMAB [Concomitant]
     Active Substance: PEMBROLIZUMAB
     Dosage: UNK
  9. DOMPERIDONE [Concomitant]
     Active Substance: DOMPERIDONE
     Dosage: UNK
  10. MIDAZOLAM MALEATE [Concomitant]
     Active Substance: MIDAZOLAM MALEATE
     Dosage: UNK
  11. SOLIFENACIN SUCCINATE;TAMSULOSIN HYDROCHLORIDE [Concomitant]
     Dosage: UNK

REACTIONS (2)
  - Poor peripheral circulation [Recovered/Resolved]
  - Respiratory distress [Recovered/Resolved]

NARRATIVE: CASE EVENT DATE: 20251014
